FAERS Safety Report 9713947 (Version 2)
Quarter: 2015Q3

REPORT INFORMATION
  Report Type: Spontaneous
  Country: US (occurrence: US)
  Receive Date: 20131126
  Receipt Date: 20150803
  Transmission Date: 20151125
  Serious: No
  Sender: FDA-Public Use
  Company Number: US-GILEAD-2008-0018219

PATIENT
  Age: 64 Year
  Sex: Female
  Weight: 131.54 kg

DRUGS (13)
  1. GLIPIZIDE. [Concomitant]
     Active Substance: GLIPIZIDE
     Dosage: AS DIRECTED
     Route: 048
  2. POTASSIUM [Concomitant]
     Active Substance: POTASSIUM
     Dosage: AS DIRECTED
     Route: 048
  3. LASIX [Concomitant]
     Active Substance: FUROSEMIDE
     Dosage: AS DIRECTED
     Route: 048
  4. ALEVE [Concomitant]
     Active Substance: NAPROXEN SODIUM
     Dosage: AS DIRECTED
     Route: 048
  5. LETAIRIS [Suspect]
     Active Substance: AMBRISENTAN
     Indication: PULMONARY ARTERIAL HYPERTENSION
     Route: 048
     Dates: start: 20080801
  6. ALBUTEROL. [Concomitant]
     Active Substance: ALBUTEROL
     Dosage: AS DIRECTED
  7. DIOVAN [Concomitant]
     Active Substance: VALSARTAN
     Dosage: AS DIRECTED
     Route: 048
  8. CIMETIDINE [Concomitant]
     Active Substance: CIMETIDINE
     Dosage: AS DIRECTED
     Route: 048
  9. CELEXA [Concomitant]
     Active Substance: CITALOPRAM HYDROBROMIDE
     Dosage: AS DIRECTED
     Route: 048
  10. COREG [Concomitant]
     Active Substance: CARVEDILOL
     Dosage: AS DIRECTED
     Route: 048
  11. REVATIO [Concomitant]
     Active Substance: SILDENAFIL CITRATE
     Dosage: AS DIRECTED
     Route: 048
  12. FELODIPINEEXTENDED-RELEASE TABLETS [Concomitant]
     Active Substance: FELODIPINE
     Dosage: AS DIRECTED
     Route: 048
  13. ASPIRIN. [Concomitant]
     Active Substance: ASPIRIN
     Dosage: AS DIRECTED
     Route: 048

REACTIONS (2)
  - Peripheral swelling [None]
  - Erythema [None]
